FAERS Safety Report 12602755 (Version 1)
Quarter: 2016Q3

REPORT INFORMATION
  Report Type: Spontaneous
  Country: US (occurrence: US)
  Receive Date: 20160728
  Receipt Date: 20160728
  Transmission Date: 20161109
  Serious: Yes (Other)
  Sender: FDA-Public Use
  Company Number: US-TEVA-677910USA

PATIENT
  Age: 53 Year
  Sex: Female

DRUGS (1)
  1. COPAXONE [Suspect]
     Active Substance: GLATIRAMER ACETATE
     Indication: MULTIPLE SCLEROSIS
     Dosage: DOSAGE UNKNOWN

REACTIONS (6)
  - Fear of injection [Unknown]
  - Injection site reaction [Unknown]
  - Urinary incontinence [Unknown]
  - Muscular weakness [Unknown]
  - Injection site pain [Unknown]
  - Multiple sclerosis relapse [Unknown]
